FAERS Safety Report 4681763-7 (Version None)
Quarter: 2005Q2

REPORT INFORMATION
  Report Type: 
  Country: None (occurrence: None)
  Receive Date: 20050603
  Receipt Date: 20050525
  Transmission Date: 20051028
  Serious: Yes (Hospitalization)
  Sender: FDA-Public Use
  Company Number: US-ABBOTT-05P-163-0301610-00

PATIENT
  Sex: Female

DRUGS (4)
  1. HUMIRA [Suspect]
     Indication: RHEUMATOID ARTHRITIS
     Route: 058
     Dates: start: 20030201, end: 20050201
  2. PREDNISONE [Concomitant]
     Indication: RHEUMATOID ARTHRITIS
     Route: 048
  3. COUMADIN [Concomitant]
     Indication: PROPHYLAXIS
     Route: 048
  4. CAMYLOFIN HYDROCHLORIDE [Concomitant]
     Indication: BLOOD PRESSURE INCREASED
     Route: 048

REACTIONS (2)
  - ARTHRITIS [None]
  - INFECTED CYST [None]
